FAERS Safety Report 4517288-9 (Version None)
Quarter: 2004Q4

REPORT INFORMATION
  Report Type: 
  Country: None (occurrence: None)
  Receive Date: 20041202
  Receipt Date: 20041129
  Transmission Date: 20050328
  Serious: Yes (Life-Threatening, Hospitalization, Disabling, Other)
  Sender: FDA-Public Use
  Company Number: US-MERCK-0411USA04169

PATIENT
  Age: 56 Year
  Sex: Female

DRUGS (9)
  1. VIOXX [Suspect]
     Indication: ARTHRITIS
     Route: 048
     Dates: start: 20010101, end: 20021201
  2. LOTENSIN [Concomitant]
     Route: 065
  3. LOTREL [Concomitant]
     Route: 065
  4. MECLIZINE HYDROCHLORIDE [Concomitant]
     Route: 065
  5. NEXIUM [Concomitant]
     Route: 065
  6. PROZAC [Concomitant]
     Route: 065
  7. LORAZEPAM [Concomitant]
     Route: 065
  8. AVANDIA [Concomitant]
     Route: 065
  9. INSULIN [Concomitant]
     Route: 065

REACTIONS (1)
  - MYOCARDIAL INFARCTION [None]
